FAERS Safety Report 14157717 (Version 1)
Quarter: 2017Q4

REPORT INFORMATION
  Report Type: Spontaneous
  Country: ES (occurrence: ES)
  Receive Date: 20171103
  Receipt Date: 20171103
  Transmission Date: 20180321
  Serious: Yes (Other)
  Sender: FDA-Public Use
  Company Number: ES-TEVA-819748ISR

PATIENT
  Age: 75 Year
  Sex: Male

DRUGS (1)
  1. SILDENAFILO RATIOPHARM 50 MG, COMPRIMIDOS RECUBIERTOS CON PELICULA EFG [Suspect]
     Active Substance: SILDENAFIL CITRATE
     Dosage: 25 MILLIGRAM DAILY;
     Route: 048
     Dates: start: 20160430

REACTIONS (1)
  - Facial paralysis [Recovered/Resolved]

NARRATIVE: CASE EVENT DATE: 20160430
